FAERS Safety Report 21906206 (Version 2)
Quarter: 2023Q1

REPORT INFORMATION
  Report Type: Report from Study
  Country: CO (occurrence: CO)
  Receive Date: 20230125
  Receipt Date: 20230207
  Transmission Date: 20230418
  Serious: Yes (Hospitalization, Other)
  Sender: FDA-Public Use
  Company Number: CO-JNJFOC-20230140927

PATIENT
  Age: 86 Year
  Sex: Female
  Weight: 50 kg

DRUGS (1)
  1. IMBRUVICA [Suspect]
     Active Substance: IBRUTINIB
     Indication: Chronic lymphocytic leukaemia
     Route: 048
     Dates: start: 20220115

REACTIONS (1)
  - Eye operation [Not Recovered/Not Resolved]

NARRATIVE: CASE EVENT DATE: 20230118
